FAERS Safety Report 14899669 (Version 3)
Quarter: 2018Q3

REPORT INFORMATION
  Report Type: Report from Study
  Country: None (occurrence: US)
  Receive Date: 20180516
  Receipt Date: 20180709
  Transmission Date: 20181010
  Serious: Yes (Other)
  Sender: FDA-Public Use
  Company Number: US-ABBVIE-18K-163-2356864-00

PATIENT
  Age: 60 Year
  Sex: Male

DRUGS (2)
  1. HUMIRA [Suspect]
     Active Substance: ADALIMUMAB
     Indication: ANKYLOSING SPONDYLITIS
     Route: 058
  2. DICLOFENAC SODIC [Concomitant]
     Indication: PRODUCT USED FOR UNKNOWN INDICATION
     Route: 061

REACTIONS (12)
  - Hernia [Recovered/Resolved]
  - Arthritis [Unknown]
  - Heart rate increased [Recovering/Resolving]
  - Neck pain [Recovering/Resolving]
  - Heart rate decreased [Not Recovered/Not Resolved]
  - Dyspnoea [Recovering/Resolving]
  - Procedural pain [Not Recovered/Not Resolved]
  - Bone pain [Recovering/Resolving]
  - Musculoskeletal pain [Recovering/Resolving]
  - Sensitivity to weather change [Recovering/Resolving]
  - Pneumonia [Recovering/Resolving]
  - Bronchitis [Recovering/Resolving]

NARRATIVE: CASE EVENT DATE: 2018
